FAERS Safety Report 5812114-X (Version None)
Quarter: 2008Q3

REPORT INFORMATION
  Report Type: 
  Country: None (occurrence: None)
  Receive Date: 20080716
  Receipt Date: 20080707
  Transmission Date: 20090109
  Serious: Yes (Death)
  Sender: FDA-Public Use
  Company Number: ES-WATSON-2008-04058

PATIENT
  Age: 43 Year
  Sex: Male

DRUGS (3)
  1. PREDNISOLONE (WATSON LABORATORIES) [Suspect]
     Indication: IMMUNOSUPPRESSANT DRUG THERAPY
     Dosage: UNK
     Dates: start: 20001001, end: 20001201
  2. TACROLIMUS [Suspect]
     Indication: IMMUNOSUPPRESSANT DRUG THERAPY
     Dosage: UNK
     Dates: start: 20001001, end: 20001201
  3. MYCOPHENOLATE MOFETIL [Suspect]
     Indication: IMMUNOSUPPRESSANT DRUG THERAPY
     Dosage: UNK
     Dates: start: 20001001, end: 20001201

REACTIONS (1)
  - RENAL CANCER METASTATIC [None]
